FAERS Safety Report 9677962 (Version 1)
Quarter: 2013Q4

REPORT INFORMATION
  Report Type: Spontaneous
  Country: CH (occurrence: CH)
  Receive Date: 20131108
  Receipt Date: 20131108
  Transmission Date: 20140711
  Serious: Yes (Hospitalization)
  Sender: FDA-Public Use
  Company Number: CH-BAYER-2013-133308

PATIENT
  Age: 52 Year
  Sex: Male

DRUGS (10)
  1. ASPIRIN CARDIO [Suspect]
     Dosage: 100 MG, UNK
     Route: 048
     Dates: end: 201307
  2. BACTRIM-FORTE [Suspect]
     Dosage: 0.5 DF (STRENGTH 800MG/160MG)
     Route: 048
     Dates: start: 201307, end: 201307
  3. PLAVIX [Suspect]
     Dosage: 75 MG, UNK
     Route: 048
     Dates: end: 201307
  4. NEBILET [Suspect]
     Dosage: 5 MG, QD
     Route: 048
     Dates: end: 201307
  5. ESOMEPRAZOLE MAGNESIUM [Suspect]
     Dosage: 40 MG, QD
     Route: 048
     Dates: end: 201307
  6. MYFORTIC [Concomitant]
     Dosage: 720 MG, BID
     Route: 048
     Dates: start: 201307
  7. PROGRAF [Concomitant]
     Dosage: 0.5 MG, BID
     Route: 048
  8. VALCYTE [Concomitant]
     Dosage: 900 MG, BID
     Route: 048
     Dates: end: 201307
  9. VALCYTE [Concomitant]
     Dosage: 900 MG, BID
     Route: 048
     Dates: start: 20130808
  10. ATARAX [Concomitant]
     Dosage: 0.5 DF, UNK
     Route: 048

REACTIONS (4)
  - Drug reaction with eosinophilia and systemic symptoms [Recovered/Resolved]
  - Rash [Recovered/Resolved]
  - Pyrexia [Recovered/Resolved]
  - Eosinophilia [Recovered/Resolved]
